FAERS Safety Report 19639724 (Version 7)
Quarter: 2021Q4

REPORT INFORMATION
  Report Type: Spontaneous
  Country: US (occurrence: US)
  Receive Date: 20210730
  Receipt Date: 20211130
  Transmission Date: 20220304
  Serious: Yes (Other)
  Sender: FDA-Public Use
  Company Number: US-MMM-H96R1J2V

PATIENT
  Age: 61 Year
  Sex: Female
  Weight: 79.4 kg

DRUGS (3)
  1. ZEJULA [Suspect]
     Active Substance: NIRAPARIB
     Indication: Ovarian cancer
     Dosage: 300 MG, QD
     Route: 048
     Dates: start: 20210712, end: 20210802
  2. ZEJULA [Suspect]
     Active Substance: NIRAPARIB
     Dosage: 200 MG, QD
     Route: 048
     Dates: start: 20210823, end: 20210920
  3. ZEJULA [Suspect]
     Active Substance: NIRAPARIB
     Dosage: 100 MG, QD
     Dates: start: 20211018

REACTIONS (24)
  - Thrombocytopenia [Unknown]
  - Neutropenia [Not Recovered/Not Resolved]
  - Ascites [Unknown]
  - Metastases to peritoneum [Unknown]
  - Nausea [Not Recovered/Not Resolved]
  - Constipation [Not Recovered/Not Resolved]
  - Dry mouth [Not Recovered/Not Resolved]
  - Heart rate increased [Unknown]
  - Blood pressure increased [Not Recovered/Not Resolved]
  - Platelet count decreased [Not Recovered/Not Resolved]
  - Multiple allergies [Unknown]
  - Stomatitis [Unknown]
  - Alopecia [Not Recovered/Not Resolved]
  - Abdominal distension [Unknown]
  - Pleural effusion [Unknown]
  - Essential hypertension [Unknown]
  - Arthralgia [Unknown]
  - Gastrooesophageal reflux disease [Unknown]
  - Urinary tract infection [Unknown]
  - Blood cholesterol increased [Unknown]
  - Dyslipidaemia [Unknown]
  - Contusion [Unknown]
  - Haemoglobin decreased [Not Recovered/Not Resolved]
  - Aphthous ulcer [Not Recovered/Not Resolved]

NARRATIVE: CASE EVENT DATE: 20210701
